FAERS Safety Report 25217088 (Version 2)
Quarter: 2025Q2

REPORT INFORMATION
  Report Type: Spontaneous
  Country: ES (occurrence: ES)
  Receive Date: 20250419
  Receipt Date: 20250509
  Transmission Date: 20250716
  Serious: Yes (Hospitalization)
  Sender: TEVA
  Company Number: None

PATIENT
  Age: 82 Year
  Sex: Male

DRUGS (4)
  1. GABAPENTIN [Interacting]
     Active Substance: GABAPENTIN
     Indication: Intervertebral disc protrusion
     Dosage: 90 CAPSULES CHRONIC 1 MEAL, 1 BEDTIME
     Route: 048
     Dates: start: 20240624, end: 20241218
  2. ENALAPRIL [Concomitant]
     Active Substance: ENALAPRIL
     Indication: Hypertension
     Dosage: 5 MG/12 H 11/22/2024 TO 11/27/2024, 10 MG /12 H 11/27/2024 TO 12/12/2024, 10 MG 1-0-0.5 12/12/202...
     Route: 048
     Dates: start: 20241122
  3. METAMIZOL [Concomitant]
     Active Substance: METAMIZOLE SODIUM
     Indication: Back pain
     Route: 048
     Dates: start: 20241204, end: 20241218
  4. ENALAPRIL\HYDROCHLOROTHIAZIDE [Interacting]
     Active Substance: ENALAPRIL\HYDROCHLOROTHIAZIDE
     Indication: Hypertension
     Dosage: ENALAPRIL/HYDROCHLOROTIAZIDE CINFA 20/12.5 MG EFG TABLETS, 28 TABLETS,1 TABLET EVERY 24 HOURS
     Route: 048
     Dates: start: 20241212, end: 20241218

REACTIONS (2)
  - Syncope [Recovered/Resolved]
  - Hyponatraemia [Recovered/Resolved]

NARRATIVE: CASE EVENT DATE: 20241218
